FAERS Safety Report 5147387-2 (Version None)
Quarter: 2006Q4

REPORT INFORMATION
  Report Type: 
  Country: None (occurrence: None)
  Receive Date: 20061106
  Receipt Date: 20061025
  Transmission Date: 20070319
  Serious: Yes (Life-Threatening, Hospitalization, Disabling)
  Sender: FDA-Public Use
  Company Number: CERZ-11079

PATIENT
  Age: 78 Year
  Sex: Male

DRUGS (2)
  1. CEREZYME [Suspect]
     Indication: GAUCHER'S DISEASE
  2. CEREZYME [Suspect]
     Indication: GAUCHER'S DISEASE
     Dates: end: 20050101

REACTIONS (12)
  - ACUTE RESPIRATORY DISTRESS SYNDROME [None]
  - CERVICAL VERTEBRAL FRACTURE [None]
  - CLAVICLE FRACTURE [None]
  - IMMUNE SYSTEM DISORDER [None]
  - LUNG INFECTION [None]
  - LUNG INJURY [None]
  - MULTIPLE FRACTURES [None]
  - NOSOCOMIAL INFECTION [None]
  - PNEUMONITIS CHEMICAL [None]
  - ROAD TRAFFIC ACCIDENT [None]
  - SCAPULA FRACTURE [None]
  - TRAUMATIC FRACTURE [None]
